FAERS Safety Report 9202603 (Version 1)
Quarter: 2013Q2

REPORT INFORMATION
  Report Type: Spontaneous
  Country: US (occurrence: US)
  Receive Date: 20130401
  Receipt Date: 20130401
  Transmission Date: 20140414
  Serious: Yes (Hospitalization)
  Sender: FDA-Public Use
  Company Number: US-B.I. PHARMACEUTICALS,INC./RIDGEFIELD-2013-BI-08338BP

PATIENT
  Age: 77 Year
  Sex: Male
  Weight: 64 kg

DRUGS (6)
  1. PRADAXA [Suspect]
     Indication: ATRIAL FIBRILLATION
     Dosage: 300 MG
     Route: 048
     Dates: start: 201212
  2. FISH OIL [Concomitant]
     Dosage: 3000 MG
     Route: 048
  3. PACERONE [Concomitant]
     Indication: ATRIAL FIBRILLATION
     Dosage: 400 MG
     Route: 048
  4. DILTIAZEM [Concomitant]
     Indication: ATRIAL FIBRILLATION
     Dosage: 180 MG
     Route: 048
  5. MULTIVITAMIN [Concomitant]
     Route: 048
  6. ASPIRIN [Concomitant]
     Dosage: 81 MG
     Route: 048

REACTIONS (9)
  - Atrial fibrillation [Recovered/Resolved]
  - Pyrexia [Recovered/Resolved]
  - Flushing [Recovered/Resolved]
  - Discomfort [Not Recovered/Not Resolved]
  - Headache [Recovered/Resolved]
  - Epistaxis [Recovered/Resolved]
  - Urinary tract infection [Recovered/Resolved]
  - Local swelling [Not Recovered/Not Resolved]
  - Joint swelling [Not Recovered/Not Resolved]
